FAERS Safety Report 10247511 (Version 1)
Quarter: 2014Q2

REPORT INFORMATION
  Report Type: Spontaneous
  Country: FR (occurrence: FR)
  Receive Date: 20140619
  Receipt Date: 20140619
  Transmission Date: 20141212
  Serious: Yes (Hospitalization, Other)
  Sender: FDA-Public Use
  Company Number: FR-PFIZER INC-2014165632

PATIENT
  Age: 81 Year
  Sex: Female

DRUGS (13)
  1. LYRICA [Suspect]
     Dosage: 1 DF, 2X/DAY
     Route: 048
     Dates: end: 20130519
  2. CONTRAMAL [Suspect]
     Dosage: 1.5 DF, 2X/DAY
     Route: 048
     Dates: end: 20130519
  3. LAROXYL [Suspect]
     Dosage: 6 GTT, 3X/DAY
     Route: 048
     Dates: end: 20130519
  4. SERESTA [Suspect]
     Dosage: 1.5 DF, 1X/DAY
     Route: 048
     Dates: end: 20130519
  5. STILNOX [Suspect]
     Dosage: 1.5 DF, 1X/DAY
     Route: 048
     Dates: end: 20130519
  6. SEROPLEX [Suspect]
     Dosage: 1.5 DF, 1X/DAY
     Route: 048
  7. TRANSIPEG [Concomitant]
  8. DOLIPRANE [Concomitant]
  9. KARDEGIC [Concomitant]
  10. MODOPAR [Concomitant]
  11. OLMETEC [Concomitant]
  12. OSTRAM [Concomitant]
  13. XAGRID [Concomitant]

REACTIONS (10)
  - Overdose [Unknown]
  - Depressed level of consciousness [Unknown]
  - Somnolence [Unknown]
  - Disturbance in attention [Unknown]
  - Mydriasis [Unknown]
  - Extensor plantar response [Unknown]
  - Renal failure [Unknown]
  - Lung infection [Unknown]
  - Extrapyramidal disorder [Unknown]
  - Eschar [Unknown]
